FAERS Safety Report 5404684-0 (Version None)
Quarter: 2007Q3

REPORT INFORMATION
  Report Type: 
  Country: None (occurrence: None)
  Receive Date: 20070731
  Receipt Date: 20070720
  Transmission Date: 20080115
  Serious: Yes (Hospitalization)
  Sender: FDA-Public Use
  Company Number: MEDI-0004456

PATIENT
  Sex: 0

DRUGS (4)
  1. SYNAGIS [Suspect]
     Indication: ANTIVIRAL PROPHYLAXIS
     Dosage: 65 MG, 1 IN 1 30 D, INTRAMUSCULAR;50 MG, 1 IN 30 D, INTRAMUSCULAR; 55 MG, 1 IN 1 30 D, INTRAMUSCULAR
     Route: 030
     Dates: start: 20051220, end: 20060316
  2. SYNAGIS [Suspect]
     Indication: ANTIVIRAL PROPHYLAXIS
     Dosage: 65 MG, 1 IN 1 30 D, INTRAMUSCULAR;50 MG, 1 IN 30 D, INTRAMUSCULAR; 55 MG, 1 IN 1 30 D, INTRAMUSCULAR
     Route: 030
     Dates: start: 20051220
  3. SYNAGIS [Suspect]
     Indication: ANTIVIRAL PROPHYLAXIS
     Dosage: 65 MG, 1 IN 1 30 D, INTRAMUSCULAR;50 MG, 1 IN 30 D, INTRAMUSCULAR; 55 MG, 1 IN 1 30 D, INTRAMUSCULAR
     Route: 030
     Dates: start: 20060120
  4. SYNAGIS [Suspect]
     Indication: ANTIVIRAL PROPHYLAXIS
     Dosage: 65 MG, 1 IN 1 30 D, INTRAMUSCULAR;50 MG, 1 IN 30 D, INTRAMUSCULAR; 55 MG, 1 IN 1 30 D, INTRAMUSCULAR
     Route: 030
     Dates: start: 20060216

REACTIONS (1)
  - BRONCHIOLITIS [None]
